FAERS Safety Report 4590057-X (Version None)
Quarter: 2005Q1

REPORT INFORMATION
  Report Type: 
  Country: None (occurrence: None)
  Receive Date: 20050217
  Receipt Date: 20050217
  Transmission Date: 20050727
  Serious: Yes (Other)
  Sender: FDA-Public Use
  Company Number: None

PATIENT
  Age: 50 Year
  Sex: Female
  Weight: 72.5755 kg

DRUGS (1)
  1. ZOLOFT [Suspect]
     Indication: MENOPAUSE
     Dosage: 7 X 25 MG AND THEN 14 X 50 MG
     Dates: start: 20050217

REACTIONS (10)
  - DIARRHOEA [None]
  - DISORIENTATION [None]
  - DRUG INTOLERANCE [None]
  - FEELING ABNORMAL [None]
  - HYPERHIDROSIS [None]
  - INSOMNIA [None]
  - PALPITATIONS [None]
  - POLLAKIURIA [None]
  - RESTLESSNESS [None]
  - TREMOR [None]
